FAERS Safety Report 17994935 (Version 10)
Quarter: 2021Q1

REPORT INFORMATION
  Report Type: Report from Study
  Country: GB (occurrence: GB)
  Receive Date: 20200708
  Receipt Date: 20210329
  Transmission Date: 20210419
  Serious: Yes (Hospitalization)
  Sender: FDA-Public Use
  Company Number: GB-CELGENEUS-GBR-20200700123

PATIENT
  Age: 82 Year
  Sex: Female

DRUGS (3)
  1. ARA?C [Suspect]
     Active Substance: CYTARABINE
     Indication: ACUTE MYELOID LEUKAEMIA
     Route: 065
     Dates: start: 20190215
  2. ARA?C [Suspect]
     Active Substance: CYTARABINE
     Dosage: REDUCED DOSE
     Route: 065
  3. LENALIDOMIDE [Suspect]
     Active Substance: LENALIDOMIDE
     Indication: ACUTE MYELOID LEUKAEMIA
     Route: 048
     Dates: start: 20190215, end: 20200622

REACTIONS (3)
  - Osteoarthritis [Not Recovered/Not Resolved]
  - Arthritis [Recovered/Resolved]
  - Urinary tract infection [Recovered/Resolved]

NARRATIVE: CASE EVENT DATE: 20200623
